FAERS Safety Report 9607574 (Version 1)
Quarter: 2013Q4

REPORT INFORMATION
  Report Type: Spontaneous
  Country: IR (occurrence: IR)
  Receive Date: 20131009
  Receipt Date: 20131009
  Transmission Date: 20140711
  Serious: Yes (Death, Other)
  Sender: FDA-Public Use
  Company Number: PHHY2013IR112718

PATIENT
  Age: 13 Year
  Sex: Female

DRUGS (1)
  1. GLEEVEC [Suspect]
     Indication: CHRONIC MYELOID LEUKAEMIA
     Dosage: 400 MG, QD

REACTIONS (4)
  - Death [Fatal]
  - Blast crisis in myelogenous leukaemia [Unknown]
  - Chronic myeloid leukaemia transformation [None]
  - Drug ineffective [Unknown]
